FAERS Safety Report 6783156-5 (Version None)
Quarter: 2010Q2

REPORT INFORMATION
  Report Type: 
  Country: None (occurrence: None)
  Receive Date: 20100622
  Receipt Date: 20100610
  Transmission Date: 20101027
  Serious: Yes (Other)
  Sender: FDA-Public Use
  Company Number: US-PFIZER INC-2010073617

PATIENT

DRUGS (1)
  1. LYRICA [Suspect]
     Dosage: UP TO 3000MG DAILY

REACTIONS (1)
  - DRUG ABUSE [None]
